FAERS Safety Report 21198085 (Version 3)
Quarter: 2023Q1

REPORT INFORMATION
  Report Type: Report from Study
  Country: US (occurrence: US)
  Receive Date: 20220811
  Receipt Date: 20230105
  Transmission Date: 20230417
  Serious: No
  Sender: FDA-Public Use
  Company Number: US-BIOVITRUM-2022US08105

PATIENT
  Sex: Male
  Weight: 80 kg

DRUGS (9)
  1. DOPTELET [Suspect]
     Active Substance: AVATROMBOPAG MALEATE
     Indication: Immune thrombocytopenia
     Dosage: ON MONDAY, WEDNESDAY, FRIDAY
  2. VITAMIN C [Concomitant]
     Active Substance: ASCORBIC ACID
  3. FISH OIL [Concomitant]
     Active Substance: FISH OIL
  4. PROMACTA [Concomitant]
     Active Substance: ELTROMBOPAG OLAMINE
  5. MAGNESIUM [MAGNESIUM HYDROXIDE] [Concomitant]
  6. CALCIUM D-500 [Concomitant]
  7. ZINC [Concomitant]
     Active Substance: ZINC
  8. DOPTELET [Suspect]
     Active Substance: AVATROMBOPAG MALEATE
     Indication: Immune thrombocytopenia
  9. VITAMIN D3 [Concomitant]
     Active Substance: CHOLECALCIFEROL

REACTIONS (7)
  - Feeling abnormal [Unknown]
  - Productive cough [Unknown]
  - Adverse drug reaction [Unknown]
  - Lethargy [Unknown]
  - Asthenia [Unknown]
  - Arthralgia [Unknown]
  - Incorrect dose administered [Unknown]
